FAERS Safety Report 7349780-6 (Version None)
Quarter: 2011Q1

REPORT INFORMATION
  Report Type: 
  Country: None (occurrence: None)
  Receive Date: 20110218
  Receipt Date: 20101021
  Transmission Date: 20110831
  Serious: Yes (Other)
  Sender: FDA-Public Use
  Company Number: JHP201000331

PATIENT

DRUGS (1)
  1. APLISOL [Suspect]
     Indication: MYCOBACTERIUM TUBERCULOSIS COMPLEX TEST
     Dates: start: 20101021, end: 20101021

REACTIONS (1)
  - HYPERSENSITIVITY [None]
